FAERS Safety Report 11761270 (Version 1)
Quarter: 2015Q4

REPORT INFORMATION
  Report Type: Spontaneous
  Country: US (occurrence: US)
  Receive Date: 20151120
  Receipt Date: 20151120
  Transmission Date: 20160304
  Serious: Yes (Death, Hospitalization, Other)
  Sender: FDA-Public Use
  Company Number: US-TEVA-564911USA

PATIENT
  Age: 66 Year
  Sex: Male

DRUGS (1)
  1. NOREPINEPHRINE [Suspect]
     Active Substance: NOREPINEPHRINE\NOREPINEPHRINE BITARTRATE
     Route: 042

REACTIONS (7)
  - Cardiac disorder [Fatal]
  - Device infusion issue [Unknown]
  - Multi-organ failure [Fatal]
  - Therapy cessation [Unknown]
  - Ejection fraction decreased [Fatal]
  - Cardiac operation [Fatal]
  - Cardiogenic shock [Fatal]

NARRATIVE: CASE EVENT DATE: 20150419
